FAERS Safety Report 7186196-X (Version None)
Quarter: 2010Q4

REPORT INFORMATION
  Report Type: 
  Country: None (occurrence: None)
  Receive Date: 20101222
  Receipt Date: 20100108
  Transmission Date: 20110411
  Serious: Yes (Hospitalization)
  Sender: FDA-Public Use
  Company Number: CA-ASTRAZENECA-2010SE00024

PATIENT
  Age: 23987 Day
  Sex: Female
  Weight: 71.2 kg

DRUGS (15)
  1. FASLODEX [Suspect]
     Indication: BREAST CANCER
     Route: 030
     Dates: start: 20090821, end: 20091113
  2. CP-751,871 [Suspect]
     Indication: BREAST CANCER
     Route: 042
     Dates: start: 20090506, end: 20091113
  3. AROMASIN [Suspect]
     Indication: BREAST CANCER
     Route: 048
     Dates: start: 20090506, end: 20090821
  4. METOPROLOL [Concomitant]
     Indication: HYPERTENSION
     Route: 065
     Dates: start: 20090902
  5. ZANTAC [Concomitant]
     Indication: DYSPEPSIA
     Route: 065
     Dates: start: 20090821, end: 20091211
  6. REGLAN [Concomitant]
     Indication: ABDOMINAL DISCOMFORT
     Route: 048
     Dates: start: 20090820
  7. REGLAN [Concomitant]
     Route: 042
     Dates: start: 20090820
  8. ROBITUSSIN AC [Concomitant]
     Indication: COUGH
     Route: 065
     Dates: start: 20090730
  9. MYLANTA [Concomitant]
     Indication: DYSPEPSIA
     Route: 065
     Dates: start: 20090730
  10. METFORMIN [Concomitant]
     Indication: HYPERGLYCAEMIA
     Route: 065
     Dates: start: 20090710
  11. FUROSEMIDE [Concomitant]
     Indication: HYPERTENSION
     Route: 065
     Dates: start: 20081001
  12. COVERSYL PLUS [Concomitant]
     Indication: HYPERTENSION
     Route: 065
     Dates: start: 20070501
  13. ALLOPURINOL [Concomitant]
     Indication: GOUT
     Route: 065
     Dates: start: 20020301
  14. APO-FENOFIBRATE [Concomitant]
     Indication: BLOOD CHOLESTEROL ABNORMAL
     Route: 065
     Dates: start: 20021001
  15. CARBOCAL D 400 [Concomitant]
     Indication: OSTEOPOROSIS
     Route: 065
     Dates: start: 20040101

REACTIONS (3)
  - PALPITATIONS [None]
  - PANIC ATTACK [None]
  - PULMONARY EMBOLISM [None]
